FAERS Safety Report 8834761 (Version 1)
Quarter: 2012Q4

REPORT INFORMATION
  Report Type: 
  Country: BR (occurrence: BR)
  Receive Date: 20121010
  Receipt Date: 20121010
  Transmission Date: 20130627
  Serious: Yes (Other)
  Sender: FDA-Public Use
  Company Number: BR-JNJFOC-20121003372

PATIENT
  Sex: Female

DRUGS (4)
  1. TYLEX [Suspect]
     Indication: PAIN
     Route: 048
     Dates: start: 201205
  2. OMEPRAZOLE [Concomitant]
     Indication: GASTRITIS
     Route: 065
  3. LYRICA [Concomitant]
     Indication: NERVOUSNESS
     Route: 048
  4. TRAMAL [Concomitant]
     Indication: PAIN
     Route: 048
     Dates: start: 2011

REACTIONS (4)
  - Hypokinesia [Not Recovered/Not Resolved]
  - Sensory loss [Not Recovered/Not Resolved]
  - Nervous system disorder [Not Recovered/Not Resolved]
  - Diarrhoea [Unknown]
